FAERS Safety Report 23190024 (Version 2)
Quarter: 2023Q4

REPORT INFORMATION
  Report Type: Spontaneous
  Country: IT (occurrence: IT)
  Receive Date: 20231116
  Receipt Date: 20231118
  Transmission Date: 20240110
  Serious: Yes (Other)
  Sender: FDA-Public Use
  Company Number: IT-MINISAL02-953189

PATIENT
  Sex: Female

DRUGS (5)
  1. ATORVASTATIN [Suspect]
     Active Substance: ATORVASTATIN
     Indication: Hypertension
     Dosage: 40 MILLIGRAM, ONCE A DAY (40 MG/ DAY)
     Route: 048
     Dates: start: 20181128, end: 20181130
  2. RAMIPRIL [Suspect]
     Active Substance: RAMIPRIL
     Indication: Hypertension
     Dosage: 5 MILLIGRAM, ONCE A DAY (5 MG/ DAY)
     Route: 048
     Dates: start: 20181206, end: 20190201
  3. ROSUVASTATIN [Suspect]
     Active Substance: ROSUVASTATIN
     Indication: Hypertension
     Dosage: UNK
     Route: 048
     Dates: end: 20200801
  4. EZETIMIBE [Suspect]
     Active Substance: EZETIMIBE
     Indication: Hypertension
     Dosage: UNK
     Route: 048
     Dates: end: 20200801
  5. CLOPIDOGREL [Concomitant]
     Active Substance: CLOPIDOGREL BISULFATE
     Indication: Hypertension
     Dosage: UNK
     Route: 048
     Dates: start: 20181111

REACTIONS (5)
  - Loss of consciousness [Recovered/Resolved]
  - Syncope [Recovered/Resolved]
  - Joint swelling [Recovering/Resolving]
  - Abdominal pain upper [Recovered/Resolved]
  - Pain [Recovering/Resolving]

NARRATIVE: CASE EVENT DATE: 20181130
